FAERS Safety Report 12249318 (Version 1)
Quarter: 2016Q2

REPORT INFORMATION
  Report Type: Spontaneous
  Country: FR (occurrence: FR)
  Receive Date: 20160408
  Receipt Date: 20160408
  Transmission Date: 20160815
  Serious: Yes (Life-Threatening)
  Sender: FDA-Public Use
  Company Number: FR-SA-2016SA068492

PATIENT
  Age: 66 Year
  Sex: Male

DRUGS (18)
  1. CISPLATIN. [Suspect]
     Active Substance: CISPLATIN
     Indication: HYPOPHARYNGEAL CANCER
     Dosage: DAILY DOSE: 35 MG/M?35 MG/M? I.E. 32 MG/COURSE
     Route: 042
     Dates: start: 20061120, end: 20061226
  2. LEVOTHYROX [Concomitant]
     Active Substance: LEVOTHYROXINE
     Dosage: STRENGTH 75 MCG
  3. IMOVANE [Concomitant]
     Active Substance: ZOPICLONE
     Dosage: 7.5 MG
  4. FLUOROURACIL. [Suspect]
     Active Substance: FLUOROURACIL
     Indication: HYPOPHARYNGEAL CANCER
     Dosage: 2000 MG/M? I.E. 1821 MG/COURSE; 6 COURSES OF CHEMOTHERAPY
     Route: 042
     Dates: start: 20061120, end: 20061226
  5. FORLAX [Concomitant]
     Active Substance: POLYETHYLENE GLYCOL 4000
  6. FLUOROURACIL. [Suspect]
     Active Substance: FLUOROURACIL
     Indication: HYPOPHARYNGEAL CANCER
     Route: 042
     Dates: start: 20090309, end: 20090426
  7. AERIUS [Concomitant]
     Active Substance: DESLORATADINE
     Dosage: 5B MG
  8. LAMALINE [Concomitant]
     Active Substance: ACETAMINOPHEN\CAFFEINE\OPIUM
     Indication: PAIN
  9. TARDYFERON [Concomitant]
     Active Substance: FERROUS SULFATE\FOLIC ACID
  10. ZYLORIC [Concomitant]
     Active Substance: ALLOPURINOL
     Dosage: STRENGTH:200 MG
  11. KARDEGIC [Concomitant]
     Active Substance: ASPIRIN LYSINE
     Dosage: 160 MG
  12. METFORMIN [Concomitant]
     Active Substance: METFORMIN HYDROCHLORIDE
     Dosage: STRENGTH: 1000 MG
  13. CISPLATIN. [Suspect]
     Active Substance: CISPLATIN
     Indication: HYPOPHARYNGEAL CANCER
     Dosage: DAILY DOSE: 35 MG/M?35 MG/M? I.E. 32 MG/COURSE
     Route: 042
     Dates: start: 20090309, end: 20090426
  14. TAXOTERE [Suspect]
     Active Substance: DOCETAXEL
     Indication: HYPOPHARYNGEAL CANCER
     Dosage: 80 MG SOLUTION FOR DILUTION AND SOLVENT FOR INFUSION
     Route: 042
     Dates: start: 20090309, end: 20090426
  15. DEXAMETHASONE. [Suspect]
     Active Substance: DEXAMETHASONE
     Indication: HYPOPHARYNGEAL CANCER
     Route: 042
     Dates: start: 20090309, end: 20090426
  16. TARKA [Concomitant]
     Active Substance: TRANDOLAPRIL\VERAPAMIL HYDROCHLORIDE
     Dosage: 180/2 MG
  17. PANTOPRAZOLE [Concomitant]
     Active Substance: PANTOPRAZOLE SODIUM
     Dosage: 20 MG
  18. RHINOCORT [Concomitant]
     Active Substance: BUDESONIDE

REACTIONS (1)
  - B-cell lymphoma [Not Recovered/Not Resolved]

NARRATIVE: CASE EVENT DATE: 201603
